FAERS Safety Report 4472611-9 (Version None)
Quarter: 2004Q4

REPORT INFORMATION
  Report Type: 
  Country: None (occurrence: None)
  Receive Date: 20041008
  Receipt Date: 20040920
  Transmission Date: 20050328
  Serious: Yes (Other)
  Sender: FDA-Public Use
  Company Number: CA_040907279

PATIENT
  Sex: Female

DRUGS (1)
  1. HUMALOG-HUMAN INSULIN (RDNA): 25% LISPRO, 75% NPL (LI [Suspect]
     Indication: DIABETES MELLITUS

REACTIONS (1)
  - SYNCOPE [None]
